FAERS Safety Report 12294177 (Version 1)
Quarter: 2016Q2

REPORT INFORMATION
  Report Type: Spontaneous
  Country: US (occurrence: US)
  Receive Date: 20160422
  Receipt Date: 20160422
  Transmission Date: 20160815
  Serious: Yes (Other)
  Sender: FDA-Public Use
  Company Number: US-BEH-2016061343

PATIENT
  Sex: Female
  Weight: 96 kg

DRUGS (20)
  1. NAPROXEN. [Concomitant]
     Active Substance: NAPROXEN
  2. SPIRONOLACTONE. [Concomitant]
     Active Substance: SPIRONOLACTONE
  3. ACETAMINOPHEN. [Concomitant]
     Active Substance: ACETAMINOPHEN
  4. DIPHENHYDRAMINE. [Concomitant]
     Active Substance: DIPHENHYDRAMINE
  5. HIZENTRA [Suspect]
     Active Substance: HUMAN IMMUNOGLOBULIN G
     Indication: HYPOGAMMAGLOBULINAEMIA
  6. EPIPEN [Concomitant]
     Active Substance: EPINEPHRINE
  7. HIZENTRA [Suspect]
     Active Substance: HUMAN IMMUNOGLOBULIN G
  8. LIPITOR [Concomitant]
     Active Substance: ATORVASTATIN CALCIUM
  9. MULTIVITAMINS [Concomitant]
     Active Substance: VITAMINS
  10. HIZENTRA [Suspect]
     Active Substance: HUMAN IMMUNOGLOBULIN G
     Route: 058
     Dates: start: 20151229
  11. NORVASC [Concomitant]
     Active Substance: AMLODIPINE BESYLATE
  12. LOSARTAN. [Concomitant]
     Active Substance: LOSARTAN
  13. DRUG USED IN DIABETES [Concomitant]
     Active Substance: UNSPECIFIED INGREDIENT
  14. TRAMADOL. [Concomitant]
     Active Substance: TRAMADOL
  15. GARLIC. [Concomitant]
     Active Substance: GARLIC
  16. CALCIUM [Concomitant]
     Active Substance: CALCIUM
  17. TOBRAMYCIN. [Concomitant]
     Active Substance: TOBRAMYCIN
  18. TOPROL XL [Concomitant]
     Active Substance: METOPROLOL SUCCINATE
  19. ASPIRIN. [Concomitant]
     Active Substance: ASPIRIN
  20. FISH OIL [Concomitant]
     Active Substance: FISH OIL

REACTIONS (2)
  - Cystitis [Unknown]
  - Kidney infection [Unknown]
